FAERS Safety Report 6962936-7 (Version None)
Quarter: 2010Q3

REPORT INFORMATION
  Report Type: 
  Country: None (occurrence: None)
  Receive Date: 20100823
  Receipt Date: 20100702
  Transmission Date: 20110219
  Serious: Yes (Hospitalization)
  Sender: FDA-Public Use
  Company Number: 015155

PATIENT
  Age: 20 Year
  Sex: Male
  Weight: 136.0791 kg

DRUGS (4)
  1. CIMZIA [Suspect]
     Indication: CROHN'S DISEASE
     Dosage: SUBCUTANEOUS
     Route: 058
     Dates: start: 20090501
  2. PRILOSEC [Concomitant]
  3. CARAFATE [Concomitant]
  4. ACECOL [Concomitant]

REACTIONS (2)
  - ABDOMINAL PAIN [None]
  - RECTAL HAEMORRHAGE [None]
